FAERS Safety Report 4425287-0 (Version None)
Quarter: 2004Q3

REPORT INFORMATION
  Report Type: 
  Country: None (occurrence: None)
  Receive Date: 20040813
  Receipt Date: 20040809
  Transmission Date: 20050211
  Serious: Yes (Other)
  Sender: FDA-Public Use
  Company Number: TR-JNJFOC-20040400418

PATIENT
  Age: 20 Year
  Sex: Female

DRUGS (4)
  1. INFLIXIMAB [Suspect]
     Indication: BEHCET'S SYNDROME
     Route: 042
  2. METHOTREXATE [Concomitant]
     Indication: BEHCET'S SYNDROME
     Route: 049
  3. COLCHICINE [Concomitant]
     Indication: BEHCET'S SYNDROME
     Route: 049
  4. METHYLPREDNISOLONE [Concomitant]
     Indication: BEHCET'S SYNDROME

REACTIONS (6)
  - DRUG INEFFECTIVE [None]
  - DRUG INTOLERANCE [None]
  - ERYTHEMA NODOSUM [None]
  - PANNICULITIS [None]
  - SCLERITIS [None]
  - VISUAL ACUITY REDUCED [None]
